FAERS Safety Report 4693738-2 (Version None)
Quarter: 2005Q2

REPORT INFORMATION
  Report Type: 
  Country: None (occurrence: None)
  Receive Date: 20050615
  Receipt Date: 20050602
  Transmission Date: 20051028
  Serious: Yes (Death)
  Sender: FDA-Public Use
  Company Number: WAES 0506USA01279

PATIENT
  Age: 63 Year
  Sex: 0

DRUGS (10)
  1. DECADRON [Suspect]
     Indication: NON-HODGKIN'S LYMPHOMA
     Dosage: 40 MG/DAILY, PO
     Route: 048
  2. CYCLOPHOSPHAMIDE [Suspect]
     Indication: NON-HODGKIN'S LYMPHOMA
     Dosage: 750 MG/M[2]DAILY, IV
     Route: 042
  3. INFUSION (FORM) EPIRUBICIN HCL [Suspect]
     Indication: NON-HODGKIN'S LYMPHOMA
     Dosage: 70 MG/M[2]/DAILY, IV
     Route: 042
  4. INFUSION (FORM) VINCRISTINE SULFATE [Suspect]
     Indication: NON-HODGKIN'S LYMPHOMA
     Dosage: 1.4  MG/M[2]/DAILY, IV
     Route: 042
  5. PREDNISOLONE [Suspect]
     Indication: NON-HODGKIN'S LYMPHOMA
     Dosage: 100 MG/DAILY, PO
     Route: 048
  6. INFUSION (FORM) IFOSFAMIDE [Suspect]
     Indication: NON-HODGKIN'S LYMPHOMA
     Dosage: 2000 MG/M[2]/DAILY, IV
     Route: 042
  7. INFUSION (FORM) [THERAPY UNSPECIFIED] [Suspect]
     Indication: NON-HODGKIN'S LYMPHOMA
     Dosage: 400 MG/M[2]/TID, IV
     Route: 042
  8. INFUSION (FORM)[THERAPY UNSPECIFIED] [Suspect]
     Indication: NON-HODGKIN'S LYMPHOMA
     Dosage: 100 MG/M[2]/DAILY, IV
     Route: 042
  9. METHOTREXATE [Suspect]
     Indication: NON-HODGKIN'S LYMPHOMA
     Dosage: 800 MG/M[2], DAILY, IV
     Route: 042
  10. LEUCOVORIN CALCIUM [Suspect]
     Dosage: 15 MG/M[2]/Q6H, PO
     Route: 048

REACTIONS (3)
  - COLITIS [None]
  - DRUG TOXICITY [None]
  - PNEUMONIA [None]
